FAERS Safety Report 14067752 (Version 1)
Quarter: 2017Q4

REPORT INFORMATION
  Report Type: Report from Study
  Country: US (occurrence: US)
  Receive Date: 20171010
  Receipt Date: 20171010
  Transmission Date: 20180321
  Serious: Yes (Hospitalization, Other)
  Sender: FDA-Public Use
  Company Number: US-GILEAD-2017-0297683

PATIENT
  Age: 87 Year
  Sex: Female

DRUGS (14)
  1. SYMBICORT [Concomitant]
     Active Substance: BUDESONIDE\FORMOTEROL FUMARATE DIHYDRATE
  2. FUROSEMIDE. [Concomitant]
     Active Substance: FUROSEMIDE
  3. COLCHICINE. [Concomitant]
     Active Substance: COLCHICINE
  4. ULORIC [Concomitant]
     Active Substance: FEBUXOSTAT
  5. AMBRISENTAN [Suspect]
     Active Substance: AMBRISENTAN
     Indication: PULMONARY ARTERIAL HYPERTENSION
     Dosage: 5 MG, QD
     Route: 065
     Dates: start: 20150430
  6. LEVOTHYROXINE. [Concomitant]
     Active Substance: LEVOTHYROXINE
  7. CARTIA                             /00002701/ [Concomitant]
     Active Substance: ASPIRIN
  8. ATENOLOL. [Concomitant]
     Active Substance: ATENOLOL
  9. PREDNISONE. [Concomitant]
     Active Substance: PREDNISONE
  10. SPIRIVA [Concomitant]
     Active Substance: TIOTROPIUM BROMIDE MONOHYDRATE
  11. TRAMADOL. [Concomitant]
     Active Substance: TRAMADOL
  12. CEFUROXIME. [Concomitant]
     Active Substance: CEFUROXIME
  13. ALLOPURINOL. [Concomitant]
     Active Substance: ALLOPURINOL
  14. WARFARIN [Concomitant]
     Active Substance: WARFARIN

REACTIONS (2)
  - Drug dose omission [Recovered/Resolved]
  - Pulmonary arterial hypertension [Unknown]

NARRATIVE: CASE EVENT DATE: 20170926
